FAERS Safety Report 9128668 (Version 1)
Quarter: 2013Q1

REPORT INFORMATION
  Report Type: Spontaneous
  Country: US (occurrence: US)
  Receive Date: 20130228
  Receipt Date: 20130228
  Transmission Date: 20140127
  Serious: Yes (Other)
  Sender: FDA-Public Use
  Company Number: US-TEVA-388748USA

PATIENT
  Age: 62 Year
  Sex: Male

DRUGS (3)
  1. BUPROPION [Suspect]
     Indication: MAJOR DEPRESSION
  2. CITALOPRAM [Interacting]
     Indication: MAJOR DEPRESSION
  3. TRAMADOL [Interacting]
     Indication: MUSCULOSKELETAL PAIN

REACTIONS (2)
  - Serotonin syndrome [Recovered/Resolved]
  - Drug interaction [Recovered/Resolved]
